FAERS Safety Report 6182759-9 (Version None)
Quarter: 2009Q2

REPORT INFORMATION
  Report Type: 
  Country: None (occurrence: None)
  Receive Date: 20090507
  Receipt Date: 20090429
  Transmission Date: 20091009
  Serious: Yes (Hospitalization)
  Sender: FDA-Public Use
  Company Number: DE-NOVOPROD-279800

PATIENT
  Sex: Male
  Weight: 27.1 kg

DRUGS (2)
  1. NORDITROPIN [Suspect]
     Indication: SMALL FOR DATES BABY
     Dosage: 1 MG, QD
     Route: 058
     Dates: start: 20080108, end: 20080519
  2. NORDITROPIN [Suspect]
     Dosage: 1 MG, QD
     Route: 058
     Dates: start: 20080630

REACTIONS (3)
  - HEADACHE [None]
  - NAUSEA [None]
  - VOMITING [None]
